FAERS Safety Report 5116705-3 (Version None)
Quarter: 2006Q3

REPORT INFORMATION
  Report Type: 
  Country: None (occurrence: None)
  Receive Date: 20060925
  Receipt Date: 20060912
  Transmission Date: 20061208
  Serious: Yes (Other)
  Sender: FDA-Public Use
  Company Number: 2006110442

PATIENT
  Age: 91 Year
  Sex: Female

DRUGS (4)
  1. DETROL [Suspect]
     Indication: POLLAKIURIA
     Dosage: 4 MG (4 MG, 1 IN 1 D)
  2. ARICEPT [Suspect]
     Indication: AMNESIA
     Dosage: 5 MG (5 MG, 1 IN 1 D)
  3. HALDOL [Concomitant]
  4. PROTONIX [Concomitant]

REACTIONS (4)
  - DRUG EFFECT DECREASED [None]
  - HALLUCINATION [None]
  - INSOMNIA [None]
  - URINARY TRACT INFECTION [None]
